FAERS Safety Report 6695751-2 (Version None)
Quarter: 2010Q2

REPORT INFORMATION
  Report Type: 
  Country: None (occurrence: None)
  Receive Date: 20100426
  Receipt Date: 20100406
  Transmission Date: 20101027
  Serious: No
  Sender: FDA-Public Use
  Company Number: US-BAYER-201018694NA

PATIENT
  Sex: Female

DRUGS (1)
  1. MIRENA [Suspect]
     Indication: DRUG USE FOR UNKNOWN INDICATION
     Dosage: FREQUENCY: CONTINUOUS
     Route: 015

REACTIONS (3)
  - GENITAL INFECTION BACTERIAL [None]
  - GENITAL INFECTION FEMALE [None]
  - GYNAECOLOGICAL CHLAMYDIA INFECTION [None]
